FAERS Safety Report 4365218-5 (Version None)
Quarter: 2004Q2

REPORT INFORMATION
  Report Type: 
  Country: None (occurrence: None)
  Receive Date: 20040525
  Receipt Date: 20040323
  Transmission Date: 20050107
  Serious: No
  Sender: FDA-Public Use
  Company Number: PHEH2004US03324

PATIENT
  Age: 50 Year
  Sex: Female

DRUGS (2)
  1. ZELNORM [Suspect]
     Indication: IRRITABLE BOWEL SYNDROME
     Dosage: 6 MG, QD/BID, ORAL
     Route: 048
     Dates: start: 20040315
  2. NEXIUM /UNK/ (ESOMEPRAZOLE) [Concomitant]

REACTIONS (1)
  - HYPOTRICHOSIS [None]
